FAERS Safety Report 20206937 (Version 1)
Quarter: 2021Q4

REPORT INFORMATION
  Report Type: Spontaneous
  Country: DE (occurrence: DE)
  Receive Date: 20211220
  Receipt Date: 20211220
  Transmission Date: 20220303
  Serious: Yes (Hospitalization)
  Sender: FDA-Public Use
  Company Number: None

PATIENT
  Age: 80 Year
  Sex: Female
  Weight: 67 kg

DRUGS (9)
  1. METFORMIN [Concomitant]
     Active Substance: METFORMIN HYDROCHLORIDE
     Indication: Product used for unknown indication
     Dosage: 500 MG, 1-1-1-0
     Route: 048
  2. METAMIZOLE [Suspect]
     Active Substance: METAMIZOLE
     Indication: Product used for unknown indication
     Dosage: 500 MG, 1-1-1-0
     Route: 048
  3. CETIRIZINE [Suspect]
     Active Substance: CETIRIZINE HYDROCHLORIDE
     Indication: Product used for unknown indication
     Dosage: 10 MG, 1-0-0-0
     Route: 048
  4. QUETIAPINE [Suspect]
     Active Substance: QUETIAPINE
     Indication: Product used for unknown indication
     Dosage: 50 MG, 1-0-0-0
     Route: 048
  5. ASPIRIN [Suspect]
     Active Substance: ASPIRIN
     Indication: Product used for unknown indication
     Dosage: 100 MG, 0-1-0-0
     Route: 048
  6. RAMIPRIL [Concomitant]
     Active Substance: RAMIPRIL
     Indication: Product used for unknown indication
     Dosage: 2.5 MG, 1-0-0-1
     Route: 048
  7. PANTOPRAZOLE [Suspect]
     Active Substance: PANTOPRAZOLE
     Indication: Product used for unknown indication
     Dosage: 20 MG
     Route: 048
  8. MIRTAZAPINE [Concomitant]
     Active Substance: MIRTAZAPINE
     Indication: Product used for unknown indication
     Dosage: 15 MG, 0-0-2-0
     Route: 048
  9. DULOXETINE [Suspect]
     Active Substance: DULOXETINE
     Indication: Product used for unknown indication
     Dosage: 60 MG, 1-0-0-0
     Route: 048

REACTIONS (6)
  - Abdominal pain [Unknown]
  - Weight decreased [Unknown]
  - Haemoglobin decreased [Unknown]
  - Pain [Unknown]
  - Night sweats [Unknown]
  - Pruritus [Unknown]
